FAERS Safety Report 8502481-0 (Version None)
Quarter: 2012Q3

REPORT INFORMATION
  Report Type: 
  Country: None (occurrence: None)
  Receive Date: 20120711
  Receipt Date: 20120705
  Transmission Date: 20120928
  Serious: Yes (Other)
  Sender: FDA-Public Use
  Company Number: US-BAYER-2012-012107

PATIENT
  Age: 24 Year
  Sex: Female
  Weight: 97.506 kg

DRUGS (6)
  1. MULTI-VITAMIN [Concomitant]
  2. IBUPROFEN [Concomitant]
  3. MACROBID [Concomitant]
     Indication: URINARY TRACT INFECTION
     Dosage: 100 BID
     Dates: start: 20080401
  4. YASMIN [Suspect]
     Indication: PREMENSTRUAL SYNDROME
     Dosage: UNK
     Dates: start: 20080301, end: 20080330
  5. YASMIN [Suspect]
     Indication: ACNE
  6. ACETAMINOPHEN [Concomitant]

REACTIONS (7)
  - CHOLECYSTECTOMY [None]
  - ANXIETY [None]
  - CHOLELITHIASIS [None]
  - PAIN [None]
  - EMOTIONAL DISTRESS [None]
  - GENERAL PHYSICAL HEALTH DETERIORATION [None]
  - ANHEDONIA [None]
